FAERS Safety Report 6359299-7 (Version None)
Quarter: 2009Q3

REPORT INFORMATION
  Report Type: 
  Country: None (occurrence: None)
  Receive Date: 20090917
  Receipt Date: 20090909
  Transmission Date: 20100115
  Serious: Yes (Hospitalization, Other)
  Sender: FDA-Public Use
  Company Number: US-ROCHE-652557

PATIENT
  Sex: Female
  Weight: 62.6 kg

DRUGS (1)
  1. CAPECITABINE [Suspect]
     Indication: BREAST CANCER
     Dosage: TWO TABLETS IN MORNING AND ONE IN EVENING
     Route: 048
     Dates: start: 20090512, end: 20090823

REACTIONS (4)
  - HYPOAESTHESIA [None]
  - MALIGNANT NEOPLASM PROGRESSION [None]
  - PAIN [None]
  - SPINAL CORD COMPRESSION [None]
